FAERS Safety Report 4538280-4 (Version None)
Quarter: 2004Q4

REPORT INFORMATION
  Report Type: 
  Country: None (occurrence: None)
  Receive Date: 20041227
  Receipt Date: 20041216
  Transmission Date: 20050328
  Serious: Yes (Hospitalization)
  Sender: FDA-Public Use
  Company Number: FR-BRISTOL-MYERS SQUIBB COMPANY-12799318

PATIENT
  Age: 64 Year
  Sex: Male

DRUGS (10)
  1. GLUCOPHAGE [Suspect]
     Indication: DIABETES MELLITUS
     Route: 048
  2. DIAMICRON [Suspect]
     Indication: DIABETES MELLITUS
     Route: 048
  3. MEDIATOR [Suspect]
     Route: 048
  4. PROZAC [Suspect]
     Route: 048
  5. ZOCOR [Suspect]
     Indication: HYPERLIPIDAEMIA
     Route: 048
  6. ARICEPT [Suspect]
     Indication: DEMENTIA ALZHEIMER'S TYPE
     Route: 048
     Dates: start: 20030301
  7. MICARDIS [Suspect]
  8. PLAVIX [Suspect]
  9. TADENAN [Suspect]
  10. ANESTHESIA [Concomitant]
     Indication: TOOTH EXTRACTION

REACTIONS (1)
  - SYNCOPE [None]
